FAERS Safety Report 16138861 (Version 1)
Quarter: 2019Q2

REPORT INFORMATION
  Report Type: Other
  Country: GB (occurrence: GB)
  Receive Date: 20190401
  Receipt Date: 20190401
  Transmission Date: 20190711
  Serious: Yes (Other)
  Sender: FDA-Public Use
  Company Number: GB-LUPIN PHARMACEUTICALS INC.-2018-04547

PATIENT
  Age: 23 Year
  Sex: Female
  Weight: 115 kg

DRUGS (1)
  1. SERTRALINE HYDROCHLORIDE. [Suspect]
     Active Substance: SERTRALINE HYDROCHLORIDE
     Indication: DEPRESSION
     Dosage: 50 MG, UNK
     Route: 048
     Dates: start: 20180401

REACTIONS (3)
  - Dyspepsia [Recovered/Resolved]
  - Diarrhoea [Unknown]
  - Nausea [Unknown]
